FAERS Safety Report 25749911 (Version 1)
Quarter: 2025Q3

REPORT INFORMATION
  Report Type: Spontaneous
  Country: US (occurrence: US)
  Receive Date: 20250902
  Receipt Date: 20250902
  Transmission Date: 20251021
  Serious: Yes (Life-Threatening, Hospitalization, Congenital Anomaly)
  Sender: MYLAN
  Company Number: US-MYLANLABS-2025M1073091

PATIENT

DRUGS (2)
  1. INDOMETHACIN [Suspect]
     Active Substance: INDOMETHACIN
     Indication: Maternal-foetal therapy
     Dosage: 100 MILLIGRAM, BID
  2. INDOMETHACIN [Suspect]
     Active Substance: INDOMETHACIN
     Dosage: 100 MILLIGRAM, QD

REACTIONS (3)
  - Congenital arterial malformation [Unknown]
  - Ductus arteriosus premature closure [Unknown]
  - Foetal exposure during pregnancy [Recovered/Resolved]
